FAERS Safety Report 7511300-0 (Version None)
Quarter: 2011Q2

REPORT INFORMATION
  Report Type: 
  Country: None (occurrence: None)
  Receive Date: 20110531
  Receipt Date: 20110513
  Transmission Date: 20111010
  Serious: Yes (Hospitalization, Other)
  Sender: FDA-Public Use
  Company Number: US-BAYER-201030384NA

PATIENT
  Age: 31 Year
  Sex: Female
  Weight: 87.528 kg

DRUGS (2)
  1. YAZ [Suspect]
  2. YAZ [Suspect]
     Indication: PREMENSTRUAL SYNDROME
     Dosage: UNK UNK, UNK
     Route: 048
     Dates: start: 20090305, end: 20100317

REACTIONS (6)
  - FOOD INTOLERANCE [None]
  - DIARRHOEA [None]
  - ABDOMINAL PAIN UPPER [None]
  - BILIARY DYSKINESIA [None]
  - NAUSEA [None]
  - VOMITING [None]
